FAERS Safety Report 8501511 (Version 11)
Quarter: 2014Q4

REPORT INFORMATION
  Report Type: Spontaneous
  Country: CA (occurrence: CA)
  Receive Date: 20120410
  Receipt Date: 20141031
  Transmission Date: 20150529
  Serious: Yes (Hospitalization, Other)
  Sender: FDA-Public Use
  Company Number: CA-ROCHE-1055987

PATIENT
  Age: 49 Year
  Sex: Male

DRUGS (5)
  1. XOLAIR [Suspect]
     Active Substance: OMALIZUMAB
     Route: 058
     Dates: start: 20140115
  2. XOLAIR [Suspect]
     Active Substance: OMALIZUMAB
     Route: 058
     Dates: start: 20090415
  3. XOLAIR [Suspect]
     Active Substance: OMALIZUMAB
     Indication: ASTHMA
     Route: 058
     Dates: start: 20090121
  4. ZENHALE [Suspect]
     Active Substance: FORMOTEROL FUMARATE\MOMETASONE FUROATE
     Indication: PRODUCT USED FOR UNKNOWN INDICATION
     Route: 065
  5. ADVAIR HFA [Suspect]
     Active Substance: FLUTICASONE PROPIONATE\SALMETEROL XINAFOATE
     Indication: PRODUCT USED FOR UNKNOWN INDICATION
     Route: 065

REACTIONS (17)
  - Upper respiratory tract infection [Unknown]
  - Rhinorrhoea [Unknown]
  - Drug ineffective [Unknown]
  - Skin abrasion [Unknown]
  - Pain in extremity [Unknown]
  - Meniscus injury [Unknown]
  - Fall [Unknown]
  - Dyspnoea [Unknown]
  - Cough [Unknown]
  - Respiratory rate increased [Unknown]
  - Bronchitis [Unknown]
  - Muscle rupture [Recovering/Resolving]
  - Wound [Unknown]
  - Oxygen saturation abnormal [Unknown]
  - Wheezing [Unknown]
  - Nasopharyngitis [Unknown]
  - Accident at work [Unknown]

NARRATIVE: CASE EVENT DATE: 20131008
